FAERS Safety Report 7671497-9 (Version None)
Quarter: 2011Q3

REPORT INFORMATION
  Report Type: 
  Country: None (occurrence: None)
  Receive Date: 20110804
  Receipt Date: 20110720
  Transmission Date: 20111222
  Serious: Yes (Death, Other)
  Sender: FDA-Public Use
  Company Number: 2011PV000041

PATIENT
  Age: 56 Year
  Sex: Female

DRUGS (3)
  1. DEXAMETHASONE [Concomitant]
  2. HYDROCORTISONE [Concomitant]
  3. DEPOCYT [Suspect]
     Indication: METASTASES TO MENINGES
     Dosage: 50 MG; 1X; INTH
     Route: 055

REACTIONS (11)
  - INTRACRANIAL PRESSURE INCREASED [None]
  - BRAIN OEDEMA [None]
  - COMA [None]
  - ELECTROENCEPHALOGRAM ABNORMAL [None]
  - PUPIL FIXED [None]
  - AREFLEXIA [None]
  - NEUROLOGICAL DECOMPENSATION [None]
  - MENINGITIS CHEMICAL [None]
  - HEADACHE [None]
  - BLOOD PRESSURE SYSTOLIC INCREASED [None]
  - TONIC CONVULSION [None]
